FAERS Safety Report 4277960-5 (Version None)
Quarter: 2004Q1

REPORT INFORMATION
  Report Type: 
  Country: None (occurrence: None)
  Receive Date: 20040120
  Receipt Date: 20040109
  Transmission Date: 20041129
  Serious: Yes (Other)
  Sender: FDA-Public Use
  Company Number: US-JNJFOC-20040101786

PATIENT
  Age: 11 Year
  Sex: Female
  Weight: 46.2669 kg

DRUGS (5)
  1. REMICADE [Suspect]
     Indication: RHEUMATOID ARTHRITIS
     Dosage: INTRAVENOUS
     Route: 042
  2. PREDNISONE [Concomitant]
  3. MTX (MEHTOTREXATE SODIUM) [Concomitant]
  4. CELEBREX [Concomitant]
  5. PLAQUENIL [Concomitant]

REACTIONS (1)
  - SURGERY [None]
